FAERS Safety Report 17888731 (Version 1)
Quarter: 2020Q2

REPORT INFORMATION
  Report Type: Spontaneous
  Country: US (occurrence: US)
  Receive Date: 20200611
  Receipt Date: 20200611
  Transmission Date: 20200714
  Serious: No
  Sender: FDA-Public Use
  Company Number: None

PATIENT
  Age: 69 Year
  Sex: Male

DRUGS (18)
  1. DOFETILIDE. [Concomitant]
     Active Substance: DOFETILIDE
  2. POT CHLORIDE [Concomitant]
     Active Substance: POTASSIUM CHLORIDE
  3. CLOPIDOGREL [Concomitant]
     Active Substance: CLOPIDOGREL BISULFATE
  4. ELIQUIS [Concomitant]
     Active Substance: APIXABAN
  5. HYDROCO/APAP [Concomitant]
     Active Substance: ACETAMINOPHEN\HYDROCODONE
  6. BUMETANIDE. [Concomitant]
     Active Substance: BUMETANIDE
  7. TORASEMIDE [Concomitant]
     Active Substance: TORSEMIDE
  8. TRIAMCINOLON CRE [Concomitant]
  9. GLATIRAMER 40MG/ML SYR [Suspect]
     Active Substance: GLATIRAMER
     Indication: MULTIPLE SCLEROSIS
     Route: 058
     Dates: start: 20190119
  10. METOPROL SUC [Concomitant]
  11. AMOXICILLIN. [Concomitant]
     Active Substance: AMOXICILLIN
  12. ATORVASTATIN [Concomitant]
     Active Substance: ATORVASTATIN
  13. METOPROL SUC [Concomitant]
  14. FLUTICASONE. [Concomitant]
     Active Substance: FLUTICASONE
  15. KETOROLAC [Concomitant]
     Active Substance: KETOROLAC TROMETHAMINE
  16. OFLOXACIN. [Concomitant]
     Active Substance: OFLOXACIN
  17. SPIRONOLACT [Concomitant]
     Active Substance: SPIRONOLACTONE
  18. AMOX/K CLAV [Concomitant]
     Active Substance: AMOXICILLIN\CLAVULANATE POTASSIUM

REACTIONS (2)
  - Pericardial effusion [None]
  - Pleural effusion [None]

NARRATIVE: CASE EVENT DATE: 20200609
